FAERS Safety Report 4281508-9 (Version None)
Quarter: 2004Q1

REPORT INFORMATION
  Report Type: 
  Country: None (occurrence: None)
  Receive Date: 20040112
  Receipt Date: 20030619
  Transmission Date: 20041129
  Serious: Yes (Hospitalization)
  Sender: FDA-Public Use
  Company Number: US-JNJFOC-20030602498

PATIENT
  Age: 57 Year
  Sex: Female

DRUGS (1)
  1. REOPRO [Suspect]
     Dosage: INTRAVENOUS
     Route: 042
     Dates: start: 20030612, end: 20030612

REACTIONS (3)
  - ANAEMIA [None]
  - PULMONARY HAEMORRHAGE [None]
  - THROMBOCYTOPENIA [None]
